FAERS Safety Report 5063659-4 (Version None)
Quarter: 2006Q3

REPORT INFORMATION
  Report Type: 
  Country: None (occurrence: None)
  Receive Date: 20060727
  Receipt Date: 20060719
  Transmission Date: 20061208
  Serious: Yes (Other)
  Sender: FDA-Public Use
  Company Number: US-BRISTOL-MYERS SQUIBB COMPANY-13447107

PATIENT
  Age: 50 Year
  Sex: Male
  Weight: 136 kg

DRUGS (2)
  1. DEFINITY [Suspect]
     Indication: ECHOCARDIOGRAM
     Route: 042
     Dates: start: 20060719, end: 20060719
  2. SALINE [Concomitant]
     Indication: ECHOCARDIOGRAM
     Route: 042
     Dates: start: 20060719, end: 20060719

REACTIONS (6)
  - GENERALISED ERYTHEMA [None]
  - LOSS OF CONSCIOUSNESS [None]
  - PARAESTHESIA [None]
  - PRURITUS [None]
  - PULSE ABSENT [None]
  - SINUS BRADYCARDIA [None]
